FAERS Safety Report 5457489-9 (Version None)
Quarter: 2007Q3

REPORT INFORMATION
  Report Type: 
  Country: None (occurrence: None)
  Receive Date: 20070917
  Receipt Date: 20070911
  Transmission Date: 20080115
  Serious: Yes (Hospitalization)
  Sender: FDA-Public Use
  Company Number: SP01518

PATIENT
  Age: 58 Year
  Sex: Female
  Weight: 72.5755 kg

DRUGS (7)
  1. OSMOPREP [Suspect]
     Indication: COLONOSCOPY
     Dosage: ORAL
     Route: 048
     Dates: start: 20070326, end: 20070327
  2. LISINOPRIL [Concomitant]
  3. ASACOL [Concomitant]
  4. LEVOXYL [Concomitant]
  5. LUVOX [Concomitant]
  6. SINGULAIR [Concomitant]
  7. IBUPROFEN [Concomitant]

REACTIONS (2)
  - NEPHROCALCINOSIS [None]
  - RENAL IMPAIRMENT [None]
